FAERS Safety Report 4950693-5 (Version None)
Quarter: 2006Q1

REPORT INFORMATION
  Report Type: 
  Country: None (occurrence: None)
  Receive Date: 20060321
  Receipt Date: 20060321
  Transmission Date: 20060701
  Serious: Yes (Other)
  Sender: FDA-Public Use
  Company Number: None

PATIENT
  Age: 54 Year
  Sex: Male
  Weight: 82.1 kg

DRUGS (11)
  1. RAMIPRIL [Suspect]
  2. ISOSORBIDE DINITRATE [Concomitant]
  3. ATORVASTATIN CALCIUM [Concomitant]
  4. NITROGLYCERIN [Concomitant]
  5. CLOPIDOGREL BISULFATE [Concomitant]
  6. VALSARTAN [Concomitant]
  7. PAROXETINE HCL [Concomitant]
  8. DILTIAZEM HCL [Concomitant]
  9. ATENOLOL [Concomitant]
  10. COUMADIN [Concomitant]
  11. LORAZEPAM [Concomitant]

REACTIONS (1)
  - COUGH [None]
